FAERS Safety Report 22142201 (Version 1)
Quarter: 2023Q1

REPORT INFORMATION
  Report Type: Spontaneous
  Country: CN (occurrence: CN)
  Receive Date: 20230327
  Receipt Date: 20230327
  Transmission Date: 20230418
  Serious: Yes (Other)
  Sender: FDA-Public Use
  Company Number: CN-BAYER-2023A038584

PATIENT
  Age: 64 Year
  Sex: Male
  Weight: 75 kg

DRUGS (9)
  1. ASPIRIN [Interacting]
     Active Substance: ASPIRIN
     Indication: Antiplatelet therapy
     Dosage: 0.1 G, QD
     Route: 045
     Dates: start: 20230214, end: 20230314
  2. ASPIRIN [Interacting]
     Active Substance: ASPIRIN
     Indication: Anticoagulant therapy
  3. AVELOX [Suspect]
     Active Substance: MOXIFLOXACIN HYDROCHLORIDE
     Indication: Pneumonia aspiration
     Dosage: 0.4 G, QD
     Route: 041
     Dates: start: 20230227, end: 20230313
  4. PLAVIX [Interacting]
     Active Substance: CLOPIDOGREL BISULFATE
     Indication: Antiplatelet therapy
     Dosage: 75 MG, QD
     Route: 045
     Dates: start: 20230214, end: 20230321
  5. PLAVIX [Interacting]
     Active Substance: CLOPIDOGREL BISULFATE
     Indication: Anticoagulant therapy
  6. MOSAPRIDE CITRATE [Concomitant]
     Active Substance: MOSAPRIDE CITRATE
     Indication: Gastrointestinal hypomotility
     Dosage: 5 MG, TID
     Route: 045
     Dates: start: 20230226, end: 20230321
  7. PANTOPRAZOLE SODIUM [Concomitant]
     Active Substance: PANTOPRAZOLE SODIUM
     Indication: Gastrointestinal disorder prophylaxis
     Dosage: 40 MG, QD
     Route: 045
     Dates: start: 20230213, end: 20230321
  8. URAPIDIL HYDROCHLORIDE [Concomitant]
     Active Substance: URAPIDIL HYDROCHLORIDE
     Dosage: 20 ML, QD,PUMP
     Dates: start: 20230213, end: 20230321
  9. SODIUM CHLORIDE [Concomitant]
     Active Substance: SODIUM CHLORIDE
     Dosage: 30 ML, QD
     Route: 041
     Dates: start: 20230213, end: 20230321

REACTIONS (3)
  - Haemorrhage urinary tract [Recovering/Resolving]
  - Labelled drug-drug interaction medication error [None]
  - Off label use [None]

NARRATIVE: CASE EVENT DATE: 20230214
